FAERS Safety Report 5845151-X (Version None)
Quarter: 2008Q3

REPORT INFORMATION
  Report Type: 
  Country: None (occurrence: None)
  Receive Date: 20080814
  Receipt Date: 20080804
  Transmission Date: 20090109
  Serious: Yes (Congenital Anomaly, Other)
  Sender: FDA-Public Use
  Company Number: PHBS2008BR05353

PATIENT

DRUGS (6)
  1. CARBAMAZEPINE [Suspect]
     Route: 064
  2. MYCOPHENOLATE MOFETIL [Suspect]
     Route: 064
  3. DILTIAZEM HCL [Suspect]
     Route: 064
  4. TACROLIMUS [Suspect]
     Route: 064
  5. PREDNISONE TAB [Suspect]
     Route: 064
  6. PRAVASTATIN [Suspect]
     Route: 064

REACTIONS (9)
  - ANOMALY OF MIDDLE EAR CONGENITAL [None]
  - CLEFT PALATE [None]
  - CONGENITAL ANOMALY [None]
  - DRUG EXPOSURE DURING PREGNANCY [None]
  - EAR MALFORMATION [None]
  - EXOMPHALOS [None]
  - EXTERNAL AUDITORY CANAL ATRESIA [None]
  - MICROPHTHALMOS [None]
  - PULMONARY VALVE STENOSIS CONGENITAL [None]
